FAERS Safety Report 6056028-1 (Version None)
Quarter: 2009Q1

REPORT INFORMATION
  Report Type: 
  Country: None (occurrence: None)
  Receive Date: 20090128
  Receipt Date: 20090114
  Transmission Date: 20090719
  Serious: Yes (Other)
  Sender: FDA-Public Use
  Company Number: US-ELI_LILLY_AND_COMPANY-US200805000914

PATIENT
  Sex: Female

DRUGS (5)
  1. EVISTA [Suspect]
     Indication: OSTEOPOROSIS
     Dosage: 60 MG, UNKNOWN
     Route: 065
     Dates: start: 19890101, end: 20080401
  2. LEVOXYL [Concomitant]
     Indication: HYPOTHYROIDISM
     Dosage: UNK, UNKNOWN
     Route: 065
  3. ATENOLOL [Concomitant]
  4. CALCIUM [Concomitant]
     Dosage: UNK, UNK
     Route: 048
  5. VITAMINS NOS [Concomitant]

REACTIONS (2)
  - BREAST CANCER IN SITU [None]
  - CALCINOSIS [None]
